FAERS Safety Report 4888859-5 (Version None)
Quarter: 2005Q4

REPORT INFORMATION
  Report Type: 
  Country: None (occurrence: None)
  Receive Date: 20051215
  Receipt Date: 20050613
  Transmission Date: 20060501
  Serious: Yes (Hospitalization)
  Sender: FDA-Public Use
  Company Number: 2005090257

PATIENT
  Age: 14 Year
  Sex: Female

DRUGS (3)
  1. BEXTRA [Suspect]
     Indication: PAIN
     Dosage: ORAL
     Route: 048
  2. MOTRIN [Suspect]
     Indication: PAIN
     Dosage: ORAL
     Route: 048
  3. CONCERTA [Concomitant]

REACTIONS (3)
  - ABDOMINAL PAIN [None]
  - GASTRITIS [None]
  - SPINAL DISORDER [None]
